FAERS Safety Report 6335208-1 (Version None)
Quarter: 2009Q3

REPORT INFORMATION
  Report Type: 
  Country: None (occurrence: None)
  Receive Date: 20090831
  Receipt Date: 20090821
  Transmission Date: 20100115
  Serious: Yes (Other)
  Sender: FDA-Public Use
  Company Number: NL-PFIZER INC-2009259201

PATIENT
  Age: 64 Year

DRUGS (3)
  1. CAMPTOSAR [Suspect]
     Dosage: 700 MG, CYCLIC
     Dates: start: 20090206
  2. AVASTIN [Concomitant]
     Dosage: UNK
     Dates: start: 20090206
  3. ATROPINE [Concomitant]
     Indication: CHOLINERGIC SYNDROME
     Dosage: UNK
     Dates: start: 20090522

REACTIONS (2)
  - DYSPHONIA [None]
  - EYE SWELLING [None]
